FAERS Safety Report 19610274 (Version 1)
Quarter: 2021Q3

REPORT INFORMATION
  Report Type: Spontaneous
  Country: TW (occurrence: TW)
  Receive Date: 20210726
  Receipt Date: 20210726
  Transmission Date: 20211014
  Serious: Yes (Hospitalization)
  Sender: FDA-Public Use
  Company Number: TW-LUPIN PHARMACEUTICALS INC.-2021-12900

PATIENT
  Age: 44 Year
  Sex: Male

DRUGS (2)
  1. CEFOPERAZONE+SULBACTAM [Concomitant]
     Active Substance: CEFOPERAZONE SODIUM\SULBACTAM SODIUM
     Indication: ACINETOBACTER BACTERAEMIA
     Dosage: 2000 MILLIGRAM, BID (EVERY 12 HOURS); INTRAVENOUS DRIP
     Route: 042
  2. VORICONAZOLE. [Suspect]
     Active Substance: VORICONAZOLE
     Indication: FUNGAEMIA
     Dosage: 300 MILLIGRAM, BID (EVERY 12 HOURS); INTRAVENOUS DRIP
     Route: 042

REACTIONS (2)
  - Drug ineffective for unapproved indication [Unknown]
  - Off label use [None]
